FAERS Safety Report 24064930 (Version 2)
Quarter: 2024Q3

REPORT INFORMATION
  Report Type: Spontaneous
  Country: US (occurrence: US)
  Receive Date: 20240709
  Receipt Date: 20240923
  Transmission Date: 20241016
  Serious: Yes (Hospitalization)
  Sender: BRISTOL MYERS SQUIBB
  Company Number: US-BRISTOL-MYERS SQUIBB COMPANY-2024-107122

PATIENT
  Age: 73 Year
  Sex: Female
  Weight: 64.41 kg

DRUGS (1)
  1. REVLIMID [Suspect]
     Active Substance: LENALIDOMIDE
     Indication: Plasma cell myeloma
     Route: 048

REACTIONS (5)
  - Dizziness [Recovering/Resolving]
  - Constipation [Recovering/Resolving]
  - Pain [Recovering/Resolving]
  - Perforation [Recovering/Resolving]
  - Inappropriate schedule of product administration [Unknown]
